FAERS Safety Report 4760145-3 (Version None)
Quarter: 2005Q3

REPORT INFORMATION
  Report Type: 
  Country: None (occurrence: None)
  Receive Date: 20050831
  Receipt Date: 20050831
  Transmission Date: 20060218
  Serious: Yes (Life-Threatening)
  Sender: FDA-Public Use
  Company Number: None

PATIENT
  Age: 65 Year
  Sex: Female
  Weight: 63.5036 kg

DRUGS (1)
  1. TAZTIA XL 240 MG. ANDRX [Suspect]
     Indication: HYPERTENSION
     Dosage: 1 X DAY    PO
     Route: 048
     Dates: start: 20050501, end: 20050828

REACTIONS (4)
  - BLOOD PRESSURE INCREASED [None]
  - DIZZINESS [None]
  - DRUG INEFFECTIVE [None]
  - PHARMACEUTICAL PRODUCT COMPLAINT [None]
